FAERS Safety Report 16115662 (Version 1)
Quarter: 2019Q1

REPORT INFORMATION
  Report Type: Report from Study
  Country: FR (occurrence: FR)
  Receive Date: 20190326
  Receipt Date: 20190326
  Transmission Date: 20190418
  Serious: Yes (Hospitalization)
  Sender: FDA-Public Use
  Company Number: FR-ROCHE-2288913

PATIENT
  Age: 70 Year
  Sex: Female

DRUGS (5)
  1. CC-122 [Suspect]
     Active Substance: AVADOMIDE
     Route: 065
     Dates: start: 20190108, end: 20190205
  2. WELLVONE [Concomitant]
     Active Substance: ATOVAQUONE
     Dosage: 750 MG
     Route: 065
     Dates: start: 20181127
  3. CC-122 [Suspect]
     Active Substance: AVADOMIDE
     Indication: B-CELL LYMPHOMA
     Dosage: ONCE DAILY ON A 5/7-DAY
     Route: 048
     Dates: start: 20181113
  4. OBINUTUZUMAB. [Suspect]
     Active Substance: OBINUTUZUMAB
     Indication: B-CELL LYMPHOMA
     Route: 042
     Dates: start: 20181114
  5. ZELITREX [Concomitant]
     Active Substance: VALACYCLOVIR HYDROCHLORIDE
     Dosage: 500 MG 2 IN 1 DAY
     Route: 065
     Dates: start: 20181127

REACTIONS (2)
  - Pneumonia [Not Recovered/Not Resolved]
  - Staphylococcal sepsis [Not Recovered/Not Resolved]

NARRATIVE: CASE EVENT DATE: 20190206
